FAERS Safety Report 24607617 (Version 3)
Quarter: 2025Q4

REPORT INFORMATION
  Report Type: Report from Study
  Country: EU (occurrence: EU)
  Receive Date: 20241112
  Receipt Date: 20251028
  Transmission Date: 20260117
  Serious: Yes (Hospitalization, Other)
  Sender: JOHNSON AND JOHNSON
  Company Number: EU-JNJFOC-20241116916

PATIENT

DRUGS (1)
  1. TECLISTAMAB [Suspect]
     Active Substance: TECLISTAMAB
     Indication: Product used for unknown indication
     Route: 065

REACTIONS (11)
  - Staphylococcal bacteraemia [Recovered/Resolved]
  - Vascular device infection [Recovered/Resolved]
  - Aspergillus infection [Not Recovered/Not Resolved]
  - Influenza [Recovered/Resolved]
  - Pneumonia [Recovered/Resolved]
  - Pneumonia [Recovered/Resolved]
  - Squamous cell carcinoma of the tongue [Not Recovered/Not Resolved]
  - Respiratory syncytial virus infection [Recovered/Resolved]
  - Cellulitis [Recovered/Resolved]
  - Infection [Not Recovered/Not Resolved]
  - Ear, nose and throat infection [Recovered/Resolved]

NARRATIVE: CASE EVENT DATE: 20231221
